FAERS Safety Report 23575840 (Version 1)
Quarter: 2024Q1

REPORT INFORMATION
  Report Type: Spontaneous
  Country: US (occurrence: None)
  Receive Date: 20240227
  Receipt Date: 20240227
  Transmission Date: 20240410
  Serious: Yes (Other)
  Sender: FDA-Public Use
  Company Number: None

PATIENT
  Age: 74 Year
  Sex: Female
  Weight: 74.84 kg

DRUGS (10)
  1. PAXLOVID [Suspect]
     Active Substance: NIRMATRELVIR\RITONAVIR
     Indication: COVID-19
     Dosage: 3 PILLS  IN MORNING   AT NIGHT BY MOUTH ?
     Route: 048
     Dates: start: 20231219, end: 20231223
  2. NEBIVOLOL [Concomitant]
     Active Substance: NEBIVOLOL
  3. LOSARTAN [Concomitant]
     Active Substance: LOSARTAN
  4. PROBIOTICS NOS [Concomitant]
     Active Substance: PROBIOTICS NOS
  5. VITAMIN D3 [Concomitant]
     Active Substance: CHOLECALCIFEROL
  6. D-MANNOSE [Concomitant]
  7. LYSINE [Concomitant]
     Active Substance: LYSINE
  8. DIETARY SUPPLEMENT [Concomitant]
     Active Substance: DIETARY SUPPLEMENT
  9. FISH OPI [Concomitant]
  10. SUPER BEETS HEART CHEWS [Concomitant]

REACTIONS (7)
  - Lip swelling [None]
  - Stomatitis [None]
  - Blister [None]
  - Nasopharyngitis [None]
  - Therapy cessation [None]
  - Anosmia [None]
  - Ageusia [None]

NARRATIVE: CASE EVENT DATE: 20231223
